FAERS Safety Report 24120619 (Version 1)
Quarter: 2024Q3

REPORT INFORMATION
  Report Type: Spontaneous
  Country: CN (occurrence: CN)
  Receive Date: 20240722
  Receipt Date: 20240722
  Transmission Date: 20241017
  Serious: Yes (Other)
  Sender: BIO-THERA SOLUTIONS
  Company Number: CN-Bio-Thera Solutions, Ltd.-2159286

PATIENT
  Age: 63 Year
  Sex: Male
  Weight: 60 kg

DRUGS (1)
  1. AVZIVI [Suspect]
     Active Substance: BEVACIZUMAB\BEVACIZUMAB-TNJN
     Indication: Rectal cancer
     Route: 041
     Dates: start: 20240624, end: 20240624

REACTIONS (5)
  - Blood potassium increased [Recovering/Resolving]
  - Electrocardiogram T wave peaked [Recovering/Resolving]
  - Palpitations [Recovering/Resolving]
  - Asthenia [Recovering/Resolving]
  - Blood pressure decreased [Recovering/Resolving]

NARRATIVE: CASE EVENT DATE: 20240625
